FAERS Safety Report 25771459 (Version 1)
Quarter: 2025Q3

REPORT INFORMATION
  Report Type: Spontaneous
  Country: US (occurrence: US)
  Receive Date: 20250908
  Receipt Date: 20250908
  Transmission Date: 20251021
  Serious: No
  Sender: DOMPE FARMACEUTICI
  Company Number: US-FARMAPROD-202504-1292

PATIENT
  Sex: Female

DRUGS (37)
  1. OXERVATE [Suspect]
     Active Substance: CENEGERMIN-BKBJ
     Indication: Neurotrophic keratopathy
     Route: 047
     Dates: start: 20220124, end: 20220321
  2. OXERVATE [Suspect]
     Active Substance: CENEGERMIN-BKBJ
     Route: 047
     Dates: start: 20220503, end: 20220628
  3. OXERVATE [Suspect]
     Active Substance: CENEGERMIN-BKBJ
     Route: 047
     Dates: start: 20221003, end: 20221128
  4. OXERVATE [Suspect]
     Active Substance: CENEGERMIN-BKBJ
     Route: 047
     Dates: start: 20250331
  5. LISINOPRIL [Concomitant]
     Active Substance: LISINOPRIL
  6. LEVOFLOXACIN [Concomitant]
     Active Substance: LEVOFLOXACIN
  7. MAXITROL [Concomitant]
     Active Substance: DEXAMETHASONE\NEOMYCIN SULFATE\POLYMYXIN B SULFATE
  8. SULFAMETHOXAZOLE\TRIMETHOPRIM [Concomitant]
     Active Substance: SULFAMETHOXAZOLE\TRIMETHOPRIM
  9. GLUCOSAMINE SULFATE [Concomitant]
     Active Substance: GLUCOSAMINE SULFATE
  10. CYCLOBENZAPRINE HYDROCHLORIDE [Concomitant]
     Active Substance: CYCLOBENZAPRINE HYDROCHLORIDE
  11. CHLORHEXIDINE GLUCONATE [Concomitant]
     Active Substance: CHLORHEXIDINE GLUCONATE
  12. BISOPROLOL FUMARATE\HYDROCHLOROTHIAZIDE [Concomitant]
     Active Substance: BISOPROLOL FUMARATE\HYDROCHLOROTHIAZIDE
  13. HYDROCODONE BITARTRATE AND ACETAMINOPHEN [Concomitant]
     Active Substance: ACETAMINOPHEN\HYDROCODONE BITARTRATE
  14. I CAPS [Concomitant]
  15. GABAPENTIN [Concomitant]
     Active Substance: GABAPENTIN
  16. ISTALOL [Concomitant]
     Active Substance: TIMOLOL MALEATE
  17. DORZOLAMIDE [Concomitant]
     Active Substance: DORZOLAMIDE
  18. COENZIMA Q10 [Concomitant]
  19. SHINGRIX [Concomitant]
     Active Substance: RECOMBINANT VARICELLA ZOSTER VIRUS (VZV) GLYCOPROTEIN E
  20. ASPIRIN [Concomitant]
     Active Substance: ASPIRIN
  21. MUPIROCIN [Concomitant]
     Active Substance: MUPIROCIN
  22. BRIMONIDINE TARTRATE [Concomitant]
     Active Substance: BRIMONIDINE TARTRATE
  23. TRIFLURIDINE [Concomitant]
     Active Substance: TRIFLURIDINE
  24. METAXALONE [Concomitant]
     Active Substance: METAXALONE
  25. VITAMINS [Concomitant]
     Active Substance: VITAMINS
  26. OMEGA-3 ACIDS [Concomitant]
     Active Substance: OMEGA-3 FATTY ACIDS
  27. VITAMIN D3 [Concomitant]
     Active Substance: CHOLECALCIFEROL
  28. IRON [Concomitant]
     Active Substance: IRON
  29. TYLENOL [Concomitant]
     Active Substance: ACETAMINOPHEN
  30. TIZANIDINE HYDROCHLORIDE [Concomitant]
     Active Substance: TIZANIDINE HYDROCHLORIDE
  31. ELIQUIS [Concomitant]
     Active Substance: APIXABAN
  32. ATORVASTATIN CALCIUM [Concomitant]
     Active Substance: ATORVASTATIN CALCIUM
  33. PATADAY ONCE DAILY RELIEF [Concomitant]
     Active Substance: OLOPATADINE HYDROCHLORIDE
  34. VALACYCLOVIR HYDROCHLORIDE [Concomitant]
     Active Substance: VALACYCLOVIR HYDROCHLORIDE
  35. TIMOLOL MALEATE [Concomitant]
     Active Substance: TIMOLOL MALEATE
  36. REFRESH PLUS [Concomitant]
     Active Substance: CARBOXYMETHYLCELLULOSE SODIUM
  37. OFLOXACIN [Concomitant]
     Active Substance: OFLOXACIN

REACTIONS (2)
  - Eye irritation [Unknown]
  - Ocular hyperaemia [Unknown]
